FAERS Safety Report 7982152-X (Version None)
Quarter: 2011Q4

REPORT INFORMATION
  Report Type: 
  Country: None (occurrence: None)
  Receive Date: 20111212
  Receipt Date: 20111128
  Transmission Date: 20120403
  Serious: Yes (Hospitalization)
  Sender: FDA-Public Use
  Company Number: B0767353A

PATIENT
  Age: 75 Year
  Sex: Male

DRUGS (2)
  1. INFLIXIMAB [Concomitant]
  2. INTRACONAZOLE (FORMULATION UNKNOWN) (GENERIC) (ITRACONAZOLE) [Suspect]
     Indication: HISTOPLASMOSIS
     Dosage: ORAL
     Route: 048
     Dates: start: 20080701

REACTIONS (9)
  - CARDIAC FAILURE CONGESTIVE [None]
  - MENTAL STATUS CHANGES [None]
  - HAEMODIALYSIS [None]
  - DYSPNOEA [None]
  - RENAL FAILURE ACUTE [None]
  - DRUG INEFFECTIVE [None]
  - ELECTROLYTE IMBALANCE [None]
  - ACUTE MYOCARDIAL INFARCTION [None]
  - EJECTION FRACTION DECREASED [None]
